FAERS Safety Report 15515910 (Version 1)
Quarter: 2018Q4

REPORT INFORMATION
  Report Type: Spontaneous
  Country: BR (occurrence: BR)
  Receive Date: 20181017
  Receipt Date: 20181017
  Transmission Date: 20190205
  Serious: Yes (Death, Life-Threatening, Other)
  Sender: FDA-Public Use
  Company Number: BR-AUROBINDO-AUR-APL-2018-050825

PATIENT
  Sex: Male

DRUGS (1)
  1. MEROPENEM. [Suspect]
     Active Substance: MEROPENEM
     Indication: CRONOBACTER INFECTION
     Dosage: ()
     Route: 065

REACTIONS (1)
  - Drug ineffective [Fatal]
